FAERS Safety Report 25008164 (Version 1)
Quarter: 2025Q1

REPORT INFORMATION
  Report Type: Spontaneous
  Country: JP (occurrence: None)
  Receive Date: 20250225
  Receipt Date: 20250225
  Transmission Date: 20250409
  Serious: Yes (Hospitalization)
  Sender: UMEDICA LABS
  Company Number: JP-Umedica-000631

PATIENT
  Age: 73 Year
  Sex: Male

DRUGS (1)
  1. OLMESARTAN MEDOXOMIL [Suspect]
     Active Substance: OLMESARTAN MEDOXOMIL
     Indication: Hypertension

REACTIONS (3)
  - Sprue-like enteropathy [Recovered/Resolved]
  - Colitis microscopic [Recovered/Resolved]
  - Hypotension [Unknown]
